FAERS Safety Report 7710424-2 (Version None)
Quarter: 2011Q3

REPORT INFORMATION
  Report Type: 
  Country: None (occurrence: None)
  Receive Date: 20110825
  Receipt Date: 20110812
  Transmission Date: 20111222
  Serious: Yes (Hospitalization)
  Sender: FDA-Public Use
  Company Number: JP-ELI_LILLY_AND_COMPANY-JP201105008202

PATIENT
  Age: 81 Year
  Sex: Female

DRUGS (1)
  1. FORTEO [Suspect]
     Dosage: UNK
     Route: 058
     Dates: start: 20110422, end: 20110101

REACTIONS (4)
  - ABDOMINAL PAIN [None]
  - MUSCULOSKELETAL PAIN [None]
  - SPINAL COLUMN STENOSIS [None]
  - PYREXIA [None]
